FAERS Safety Report 13965168 (Version 1)
Quarter: 2017Q3

REPORT INFORMATION
  Report Type: Spontaneous
  Country: US (occurrence: US)
  Receive Date: 20170913
  Receipt Date: 20170913
  Transmission Date: 20171128
  Serious: No
  Sender: FDA-Public Use
  Company Number: US-PERRIGO-17US001963

PATIENT
  Age: 60 Year
  Sex: Female
  Weight: 50.79 kg

DRUGS (2)
  1. TRIAMCINOLONE ACETONIDE. [Suspect]
     Active Substance: TRIAMCINOLONE ACETONIDE
     Dosage: 0.11 MG IN EACH NOSTRIL, QHS
     Route: 045
     Dates: start: 20170221, end: 20170222
  2. TRIAMCINOLONE ACETONIDE. [Suspect]
     Active Substance: TRIAMCINOLONE ACETONIDE
     Indication: NASAL CONGESTION
     Dosage: 0.055 MG IN EACH NOSTRIL, QHS
     Route: 045
     Dates: start: 20170215, end: 20170220

REACTIONS (3)
  - Underdose [Recovered/Resolved]
  - Drug ineffective [Unknown]
  - Balance disorder [Not Recovered/Not Resolved]

NARRATIVE: CASE EVENT DATE: 20170215
